FAERS Safety Report 9310579 (Version 1)
Quarter: 2013Q2

REPORT INFORMATION
  Report Type: Spontaneous
  Country: US (occurrence: US)
  Receive Date: 20130527
  Receipt Date: 20130527
  Transmission Date: 20140414
  Serious: No
  Sender: FDA-Public Use
  Company Number: US-PFIZER INC-2013161062

PATIENT
  Age: 67 Year
  Sex: Female
  Weight: 68 kg

DRUGS (2)
  1. LEVOXYL [Suspect]
     Indication: THYROID DISORDER
     Dosage: 50 UG, 1X/DAY
     Route: 048
     Dates: end: 201212
  2. LEVOXYL [Suspect]
     Dosage: 75 UG, 1X/DAY
     Route: 048
     Dates: start: 201212

REACTIONS (2)
  - Weight increased [Unknown]
  - Fatigue [Unknown]
